FAERS Safety Report 9734323 (Version 3)
Quarter: 2014Q1

REPORT INFORMATION
  Report Type: Spontaneous
  Country: IT (occurrence: IT)
  Receive Date: 20131206
  Receipt Date: 20140122
  Transmission Date: 20141002
  Serious: Yes (Hospitalization)
  Sender: FDA-Public Use
  Company Number: IT-009507513-1312ITA000786

PATIENT
  Age: 79 Year
  Sex: Male

DRUGS (7)
  1. REMERON [Suspect]
     Indication: DEPRESSION
     Dosage: 30 MG, DAILY
     Route: 048
     Dates: start: 20121101, end: 20131114
  2. REMERON [Suspect]
     Dosage: 15 MG, DAILY
     Route: 048
     Dates: start: 20131114
  3. TAVOR (LORAZEPAM) [Suspect]
     Indication: DEPRESSION
     Dosage: 5 MG, DAILY
     Route: 048
     Dates: start: 20121101, end: 20131114
  4. TAVOR (LORAZEPAM) [Suspect]
     Dosage: 2.5 MG, DAILY
     Route: 048
     Dates: start: 20131114
  5. ASPIRIN [Concomitant]
     Dosage: 100 MG, UNK
     Route: 048
  6. LANSOX [Concomitant]
     Dosage: 30 MG, UNK
     Route: 048
  7. TRIATEC (RAMIPRIL) [Concomitant]
     Dosage: UNK
     Route: 048

REACTIONS (2)
  - Psychomotor hyperactivity [Recovering/Resolving]
  - Drug abuse [Recovering/Resolving]
